FAERS Safety Report 8987591 (Version 2)
Quarter: 2013Q1

REPORT INFORMATION
  Report Type: Spontaneous
  Country: US (occurrence: US)
  Receive Date: 20121227
  Receipt Date: 20130215
  Transmission Date: 20140127
  Serious: No
  Sender: FDA-Public Use
  Company Number: US-ASTRAZENECA-2012SE93568

PATIENT
  Age: 76 Year
  Sex: Male
  Weight: 108.9 kg

DRUGS (5)
  1. PULMICORT FLEXHALER [Suspect]
     Indication: ASTHMA
     Dosage: ONE PUFF TWICE DAILY
     Route: 055
     Dates: start: 20121207
  2. PULMICORT FLEXHALER [Suspect]
     Indication: CHRONIC OBSTRUCTIVE PULMONARY DISEASE
     Dosage: ONE PUFF TWICE DAILY
     Route: 055
     Dates: start: 20121207
  3. SYMBICORT PMDI [Suspect]
     Indication: CHRONIC OBSTRUCTIVE PULMONARY DISEASE
     Dosage: 160/4.5 MCG 2 PUFFS BID
     Route: 055
     Dates: start: 20120712, end: 20121115
  4. ADVAIR [Suspect]
  5. SPIRIVA [Concomitant]

REACTIONS (8)
  - Dyspnoea [Unknown]
  - Back pain [Unknown]
  - Off label use [Unknown]
  - Drug ineffective [Unknown]
  - Throat irritation [Unknown]
  - Aphonia [Unknown]
  - Oropharyngeal pain [Unknown]
  - Dysphonia [Unknown]
